FAERS Safety Report 13469251 (Version 1)
Quarter: 2017Q2

REPORT INFORMATION
  Report Type: Spontaneous
  Country: DE (occurrence: DE)
  Receive Date: 20170421
  Receipt Date: 20170421
  Transmission Date: 20170830
  Serious: Yes (Life-Threatening, Hospitalization, Other)
  Sender: FDA-Public Use
  Company Number: DE-MYLANLABS-2017M1024097

PATIENT

DRUGS (1)
  1. METFORMIN [Suspect]
     Active Substance: METFORMIN HYDROCHLORIDE
     Indication: TYPE 2 DIABETES MELLITUS
     Dosage: DAILY DOSE: 2000 MG MILLIGRAM(S) EVERY DAY
     Route: 048

REACTIONS (3)
  - Renal failure [Recovering/Resolving]
  - Lactic acidosis [Recovering/Resolving]
  - Hypothermia [Unknown]
